FAERS Safety Report 6909310-7 (Version None)
Quarter: 2010Q3

REPORT INFORMATION
  Report Type: 
  Country: None (occurrence: None)
  Receive Date: 20100805
  Receipt Date: 20100727
  Transmission Date: 20110219
  Serious: Yes (Other)
  Sender: FDA-Public Use
  Company Number: PHHY2010US49305

PATIENT
  Sex: Male

DRUGS (2)
  1. EXELON [Suspect]
     Dosage: 1 DF, QD
     Route: 062
     Dates: start: 20100601, end: 20100705
  2. NAMENDA [Concomitant]

REACTIONS (1)
  - AGGRESSION [None]
